FAERS Safety Report 17172800 (Version 1)
Quarter: 2019Q4

REPORT INFORMATION
  Report Type: Spontaneous
  Country: US (occurrence: US)
  Receive Date: 20191219
  Receipt Date: 20191219
  Transmission Date: 20200122
  Serious: Yes (Other)
  Sender: FDA-Public Use
  Company Number: US-SA-2018SA008477

PATIENT
  Age: 64 Year
  Sex: Female
  Weight: 65.77 kg

DRUGS (18)
  1. ATORVASTATIN [Concomitant]
     Active Substance: ATORVASTATIN
  2. TEMAZEPAM. [Concomitant]
     Active Substance: TEMAZEPAM
  3. BUSPIRONE [Concomitant]
     Active Substance: BUSPIRONE HYDROCHLORIDE
  4. NITROSTAT [Concomitant]
     Active Substance: NITROGLYCERIN
  5. DILTIAZEM. [Concomitant]
     Active Substance: DILTIAZEM
  6. PANTOPRAZOLE [Concomitant]
     Active Substance: PANTOPRAZOLE
  7. BISOPROLOL [Concomitant]
     Active Substance: BISOPROLOL
  8. CYTOXAN [Concomitant]
     Active Substance: CYCLOPHOSPHAMIDE
     Indication: BREAST CANCER FEMALE
  9. TAXOTERE [Suspect]
     Active Substance: DOCETAXEL
     Dosage: 122 MG,Q3W
     Route: 042
     Dates: start: 20150304, end: 20150304
  10. ISOSORBIDE. [Concomitant]
     Active Substance: ISOSORBIDE
  11. AMIODARONE [Concomitant]
     Active Substance: AMIODARONE
  12. CLONIDINE. [Concomitant]
     Active Substance: CLONIDINE
  13. TRAMADOL. [Concomitant]
     Active Substance: TRAMADOL
  14. TAXOTERE [Suspect]
     Active Substance: DOCETAXEL
     Indication: BREAST CANCER FEMALE
     Dosage: 122 MG,Q3W
     Route: 042
     Dates: start: 20141113, end: 20141113
  15. BENAZEPRIL [Concomitant]
     Active Substance: BENAZEPRIL HYDROCHLORIDE
  16. METFORMIN [Concomitant]
     Active Substance: METFORMIN HYDROCHLORIDE
  17. WARFARIN SODIUM. [Concomitant]
     Active Substance: WARFARIN SODIUM
  18. FLUOXETINE [Concomitant]
     Active Substance: FLUOXETINE HYDROCHLORIDE

REACTIONS (1)
  - Alopecia [Not Recovered/Not Resolved]

NARRATIVE: CASE EVENT DATE: 2015
